FAERS Safety Report 9133114 (Version 1)
Quarter: 2013Q1

REPORT INFORMATION
  Report Type: Spontaneous
  Country: US (occurrence: US)
  Receive Date: 20130301
  Receipt Date: 20130301
  Transmission Date: 20140127
  Serious: Yes (Other)
  Sender: FDA-Public Use
  Company Number: US-MERCK-1302USA012859

PATIENT
  Age: 35 Year
  Sex: Female

DRUGS (4)
  1. SAPHRIS [Suspect]
     Indication: BIPOLAR DISORDER
     Dosage: UNK
     Route: 060
  2. NEURONTIN [Concomitant]
  3. LAMICTAL [Concomitant]
  4. TERGITOL 4 [Concomitant]

REACTIONS (1)
  - Convulsion [Recovering/Resolving]
